FAERS Safety Report 7680044-7 (Version None)
Quarter: 2011Q3

REPORT INFORMATION
  Report Type: 
  Country: None (occurrence: None)
  Receive Date: 20110812
  Receipt Date: 20110727
  Transmission Date: 20111222
  Serious: No
  Sender: FDA-Public Use
  Company Number: US-B.I. PHARMACEUTICALS,INC./RIDGEFIELD-2011-BP-11247BP

PATIENT
  Age: 67 Year
  Sex: Male
  Weight: 106.59 kg

DRUGS (9)
  1. ATENOLOL [Concomitant]
     Dosage: 50 MG
     Route: 048
     Dates: start: 20070101
  2. LIPITOR [Concomitant]
     Dosage: 10 MG
     Route: 048
     Dates: start: 20040101
  3. PRADAXA [Suspect]
     Indication: ATRIAL FIBRILLATION
     Dosage: 300 MG
     Route: 048
     Dates: start: 20110301
  4. PRADAXA [Suspect]
     Indication: ANTICOAGULANT THERAPY
  5. BENICAR [Concomitant]
     Dosage: 40 MG
  6. FLOMAX [Concomitant]
     Dosage: 0.4 MG
     Route: 048
     Dates: start: 20040101
  7. KEPPRA [Concomitant]
     Dosage: 1000 MG
     Route: 048
     Dates: start: 20040101
  8. ASPIRIN [Concomitant]
     Dosage: 325 MG
     Route: 048
     Dates: start: 20040101
  9. TIKOSYN [Concomitant]
     Dosage: 750 MCG
     Route: 048
     Dates: start: 20090101

REACTIONS (1)
  - JOINT SWELLING [None]
